FAERS Safety Report 4809875-5 (Version None)
Quarter: 2005Q4

REPORT INFORMATION
  Report Type: 
  Country: None (occurrence: None)
  Receive Date: 20051024
  Receipt Date: 20051005
  Transmission Date: 20060501
  Serious: Yes (Hospitalization)
  Sender: FDA-Public Use
  Company Number: DSA_65061_2005

PATIENT
  Age: 50 Year
  Sex: Male
  Weight: 113.3993 kg

DRUGS (8)
  1. LIBRAX [Suspect]
     Dosage: DF PO
     Route: 048
  2. DICLOFENAC [Concomitant]
  3. VICODIN [Concomitant]
  4. TYLENOL (CAPLET) [Concomitant]
  5. BENADRYL [Concomitant]
  6. ZANTAC [Concomitant]
  7. MULTI-VITAMINS [Concomitant]
  8. ACETAMINOPHEN [Concomitant]

REACTIONS (2)
  - CHEST PAIN [None]
  - RASH PRURITIC [None]
